FAERS Safety Report 8450305-2 (Version None)
Quarter: 2012Q2

REPORT INFORMATION
  Report Type: 
  Country: None (occurrence: None)
  Receive Date: 20120613
  Receipt Date: 20120607
  Transmission Date: 20120825
  Serious: Yes (Hospitalization, Other)
  Sender: FDA-Public Use
  Company Number: AUR-APL-2012-02465

PATIENT
  Age: 62 Year
  Sex: Male

DRUGS (2)
  1. WARFARIN SODIUM [Concomitant]
  2. AMOXICILLIN [Suspect]
     Indication: INFLUENZA LIKE ILLNESS
     Dosage: 3 GM (1 GM, 3 IN 1 D)
     Dates: start: 20070401

REACTIONS (7)
  - CYLINDRURIA [None]
  - RENAL FAILURE ACUTE [None]
  - HAEMATURIA [None]
  - ARTERIOSCLEROSIS [None]
  - URINARY CASTS [None]
  - TUBULOINTERSTITIAL NEPHRITIS [None]
  - RENAL TUBULAR DISORDER [None]
